FAERS Safety Report 8817672 (Version 1)
Quarter: 2012Q4

REPORT INFORMATION
  Report Type: 
  Country: CR (occurrence: CR)
  Receive Date: 20121001
  Receipt Date: 20121001
  Transmission Date: 20130627
  Serious: Yes (Other)
  Sender: FDA-Public Use
  Company Number: PHHY2012CR084421

PATIENT
  Age: 1 Year
  Sex: Female

DRUGS (3)
  1. CATAFLAM [Suspect]
     Indication: PYREXIA
     Dosage: One table spoon oral Q8H
     Route: 048
     Dates: start: 20120926
  2. CATAFLAM [Suspect]
     Dosage: One table spoon oral, Q6H
     Route: 048
  3. CORILIN [Concomitant]
     Dosage: 8 mg, ONCE/SINGLE
     Route: 048
     Dates: start: 20120926

REACTIONS (3)
  - Discomfort [Recovered/Resolved]
  - Abdominal pain [Recovered/Resolved]
  - Overdose [Recovered/Resolved]
